FAERS Safety Report 12356487 (Version 1)
Quarter: 2016Q2

REPORT INFORMATION
  Report Type: Spontaneous
  Country: ES (occurrence: ES)
  Receive Date: 20160511
  Receipt Date: 20160511
  Transmission Date: 20160815
  Serious: Yes (Life-Threatening, Hospitalization)
  Sender: FDA-Public Use
  Company Number: ES-B.I. PHARMACEUTICALS,INC./RIDGEFIELD-2016-BI-29509ES

PATIENT
  Age: 67 Year
  Sex: Male
  Weight: 94 kg

DRUGS (1)
  1. UROLOSIN OCAS [Suspect]
     Active Substance: TAMSULOSIN HYDROCHLORIDE
     Indication: BENIGN PROSTATIC HYPERPLASIA
     Dosage: 0.4 MG
     Route: 048
     Dates: start: 20160422, end: 20160423

REACTIONS (1)
  - Anuria [Not Recovered/Not Resolved]

NARRATIVE: CASE EVENT DATE: 20160422
